FAERS Safety Report 12527650 (Version 3)
Quarter: 2017Q2

REPORT INFORMATION
  Report Type: Spontaneous
  Country: FR (occurrence: FR)
  Receive Date: 20160705
  Receipt Date: 20170526
  Transmission Date: 20170830
  Serious: Yes (Hospitalization, Other)
  Sender: FDA-Public Use
  Company Number: FR-PFIZER INC-2016189706

PATIENT
  Age: 49 Year
  Sex: Male
  Weight: 74 kg

DRUGS (15)
  1. CITALOPRAM [Suspect]
     Active Substance: CITALOPRAM HYDROBROMIDE
     Dosage: 20 MG, 1X/DAY
     Route: 048
  2. CISPLATIN. [Suspect]
     Active Substance: CISPLATIN
     Indication: B-CELL LYMPHOMA
     Dosage: UNK
     Dates: start: 20141229, end: 20150218
  3. PREDNISONE. [Suspect]
     Active Substance: PREDNISONE
     Indication: B-CELL LYMPHOMA
     Dosage: UNK
     Dates: start: 20141002, end: 20141128
  4. BACTRIM [Suspect]
     Active Substance: SULFAMETHOXAZOLE\TRIMETHOPRIM
     Dosage: 1 DF, THREE TIMES DAILY
     Route: 048
     Dates: start: 201503
  5. ADRIAMYCIN [Suspect]
     Active Substance: DOXORUBICIN HYDROCHLORIDE
     Indication: B-CELL LYMPHOMA
     Dosage: UNK
     Dates: start: 20141002, end: 20141128
  6. RITUXIMAB [Suspect]
     Active Substance: RITUXIMAB
     Indication: B-CELL LYMPHOMA
     Dosage: UNK
     Dates: start: 20141002, end: 20141128
  7. RITUXIMAB [Suspect]
     Active Substance: RITUXIMAB
     Dosage: UNK
     Dates: start: 201702
  8. BLEOMYCINE BELLON [Suspect]
     Active Substance: BLEOMYCIN SULFATE
     Indication: B-CELL LYMPHOMA
     Dosage: 15 MG, UNK
     Dates: start: 20141002, end: 20141128
  9. ARACYTINE [Suspect]
     Active Substance: CYTARABINE
     Indication: B-CELL LYMPHOMA
     Dosage: UNK
     Dates: start: 20141229, end: 20150218
  10. CETIRIZINE [Suspect]
     Active Substance: CETIRIZINE HYDROCHLORIDE
     Dosage: 10 MG, 1X/DAY
     Route: 048
     Dates: start: 20160209, end: 20160223
  11. ELDISINE [Suspect]
     Active Substance: VINDESINE SULFATE
     Indication: B-CELL LYMPHOMA
     Dosage: UNK
     Dates: start: 20141002, end: 20141128
  12. DEXAMETHASONE. [Suspect]
     Active Substance: DEXAMETHASONE
     Indication: B-CELL LYMPHOMA
     Dosage: UNK
     Dates: start: 20141229, end: 20150218
  13. CYCLOPHOSPHAMIDE. [Suspect]
     Active Substance: CYCLOPHOSPHAMIDE
     Indication: B-CELL LYMPHOMA
     Dosage: UNK
     Dates: start: 20141128, end: 20141128
  14. ZOLPIDEM [Suspect]
     Active Substance: ZOLPIDEM\ZOLPIDEM TARTRATE
     Dosage: 7.5 MG, 1X/DAY
     Route: 048
  15. VALACICLOVIR [Suspect]
     Active Substance: VALACYCLOVIR HYDROCHLORIDE
     Dosage: 500 MG, 2X/DAY
     Route: 048
     Dates: start: 201503, end: 20160510

REACTIONS (14)
  - Thrombotic thrombocytopenic purpura [Not Recovered/Not Resolved]
  - Jaundice [Unknown]
  - Pallor [Unknown]
  - Decreased appetite [Unknown]
  - Rash [Unknown]
  - Purpura [Recovered/Resolved]
  - Thrombocytopenia [Recovering/Resolving]
  - Asthenia [Unknown]
  - Acute kidney injury [Recovered/Resolved]
  - Chromaturia [Unknown]
  - Herpes zoster [Recovered/Resolved]
  - Pain [Unknown]
  - Haemolytic anaemia [Unknown]
  - Thrombotic microangiopathy [Recovered/Resolved]

NARRATIVE: CASE EVENT DATE: 201602
